FAERS Safety Report 5734682-9 (Version None)
Quarter: 2008Q2

REPORT INFORMATION
  Report Type: 
  Country: None (occurrence: None)
  Receive Date: 20080512
  Receipt Date: 20080505
  Transmission Date: 20081010
  Serious: Yes (Other)
  Sender: FDA-Public Use
  Company Number: BR-ASTRAZENECA-2008UW09308

PATIENT
  Age: 59 Year
  Sex: Female
  Weight: 55 kg

DRUGS (1)
  1. SYMBICORT [Suspect]
     Indication: ASTHMA
     Dosage: 160/4.5 UG QD
     Route: 055
     Dates: start: 20070101

REACTIONS (3)
  - BRONCHITIS [None]
  - DYSPNOEA [None]
  - INFLUENZA [None]
